FAERS Safety Report 9064827 (Version 1)
Quarter: 2013Q1

REPORT INFORMATION
  Report Type: Report from Study
  Country: RU (occurrence: RU)
  Receive Date: 20130130
  Receipt Date: 20130130
  Transmission Date: 20140127
  Serious: Yes (Hospitalization)
  Sender: FDA-Public Use
  Company Number: RU-BRISTOL-MYERS SQUIBB COMPANY-17301375

PATIENT
  Age: 68 Year
  Sex: Male

DRUGS (4)
  1. SAXAGLIPTIN [Suspect]
     Indication: TYPE 2 DIABETES MELLITUS
     Dosage: 20FEB11-20MAR11(INTER+RESTR)?31MAR11-16MAY11(INTER+RESTR)?LAST DOSE ON 18JAN2013
     Dates: start: 20110212
  2. METFORMIN HCL [Suspect]
     Indication: TYPE 2 DIABETES MELLITUS
  3. BLINDED: PLACEBO [Suspect]
     Indication: TYPE 2 DIABETES MELLITUS
     Dosage: 20FEB11-20MAR11(INTER+RESTR)?31MAR11-16MAY11(INTER+RESTR)?LAST DOSE ON 18JAN2013
     Dates: start: 20110212
  4. ASPIRIN [Concomitant]
     Dosage: ={100MG(13MAY,14NOV11)}100MG(25AUG11)?7FEB,15MAY,14AUG,15NOV,18NOV2013
     Dates: start: 20110211

REACTIONS (1)
  - Atrial flutter [Recovered/Resolved]
